APPROVED DRUG PRODUCT: DIPYRIDAMOLE
Active Ingredient: DIPYRIDAMOLE
Strength: 25MG
Dosage Form/Route: TABLET;ORAL
Application: A086944 | Product #002
Applicant: ANI PHARMACEUTICALS INC
Approved: Apr 16, 1991 | RLD: No | RS: No | Type: DISCN